FAERS Safety Report 5156090-4 (Version None)
Quarter: 2006Q4

REPORT INFORMATION
  Report Type: 
  Country: None (occurrence: None)
  Receive Date: 20061122
  Receipt Date: 20061113
  Transmission Date: 20070319
  Serious: Yes (Hospitalization, Other)
  Sender: FDA-Public Use
  Company Number: PHRM2006FR03033

PATIENT
  Age: 55 Year
  Sex: Male
  Weight: 112 kg

DRUGS (7)
  1. LEPTICUR [Suspect]
     Indication: PARKINSONISM
     Dosage: 20 MG, QD
     Route: 048
     Dates: end: 20060717
  2. DITROPAN [Concomitant]
     Route: 048
  3. DEPAKOTE [Concomitant]
     Indication: EPILEPSY
     Dosage: 375 MG, QD
     Route: 048
     Dates: end: 20060717
  4. ZYPREXA [Concomitant]
     Indication: SCHIZOPHRENIA
     Dosage: 2 DF, QD
     Route: 048
  5. RIVOTRIL [Concomitant]
     Indication: CONVULSION
     Dosage: 100  MG, QD
     Route: 048
     Dates: end: 20060717
  6. DEROXAT [Concomitant]
     Indication: DYSTHYMIC DISORDER
     Dosage: 40 MG, QD
     Route: 048
     Dates: end: 20060717
  7. LEPONEX [Suspect]
     Indication: SCHIZOPHRENIA
     Dosage: 500 MG, QD
     Route: 048
     Dates: end: 20060717

REACTIONS (7)
  - ACUTE RESPIRATORY DISTRESS SYNDROME [None]
  - BLOOD CREATINE PHOSPHOKINASE INCREASED [None]
  - COMA [None]
  - HYPERTHERMIA MALIGNANT [None]
  - LOSS OF CONSCIOUSNESS [None]
  - PNEUMONIA PNEUMOCOCCAL [None]
  - RHABDOMYOLYSIS [None]
